FAERS Safety Report 8037251-3 (Version None)
Quarter: 2012Q1

REPORT INFORMATION
  Report Type: 
  Country: None (occurrence: None)
  Receive Date: 20120111
  Receipt Date: 20120106
  Transmission Date: 20120608
  Serious: Yes (Other)
  Sender: FDA-Public Use
  Company Number: JP-PFIZER INC-2012005695

PATIENT
  Age: 65 Year
  Sex: Male

DRUGS (13)
  1. LIPITOR [Suspect]
     Dosage: 10 MG, 2X/DAY
     Route: 048
     Dates: start: 20100727, end: 20100831
  2. LIPITOR [Suspect]
     Dosage: 10 MG, 1X/DAY
     Route: 048
     Dates: start: 20100901
  3. OMEPRAZOLE [Concomitant]
     Dosage: UNK
  4. MEXITIL [Concomitant]
     Dosage: UNK
  5. LIPITOR [Suspect]
     Indication: HYPERLIPIDAEMIA
     Dosage: 10 MG, DAILY
     Route: 048
     Dates: start: 20090915, end: 20100726
  6. VOGLIBOSE [Concomitant]
     Dosage: UNK
  7. NOVORAPID [Concomitant]
     Dosage: UNK
  8. LEVEMIR [Concomitant]
     Dosage: UNK
  9. GOSHAJINKIGAN [Concomitant]
     Dosage: UNK
  10. ALLOPURINOL [Concomitant]
     Dosage: UNK
  11. MECOBALAMIN [Concomitant]
     Dosage: UNK
  12. POLARAMINE [Concomitant]
     Dosage: UNK
  13. NOVOLIN R [Concomitant]
     Dosage: UNK

REACTIONS (2)
  - LIVER DISORDER [None]
  - HEPATIC FUNCTION ABNORMAL [None]
